FAERS Safety Report 9835586 (Version 2)
Quarter: 2014Q2

REPORT INFORMATION
  Report Type: Spontaneous
  Country: CN (occurrence: CN)
  Receive Date: 20140122
  Receipt Date: 20140402
  Transmission Date: 20141212
  Serious: Yes (Hospitalization)
  Sender: FDA-Public Use
  Company Number: PHHY2014CN005816

PATIENT
  Age: 22 Year
  Sex: Male

DRUGS (2)
  1. TELBIVUDINE [Suspect]
     Indication: ALANINE AMINOTRANSFERASE INCREASED
     Dosage: 600 MG, PER DAY
     Route: 048
  2. ENTECAVIR [Suspect]
     Indication: ANTIVIRAL TREATMENT

REACTIONS (29)
  - Jugular vein distension [Unknown]
  - Lung infection [Recovering/Resolving]
  - Pyrexia [Recovering/Resolving]
  - Cough [Recovering/Resolving]
  - Pleural effusion [Unknown]
  - Chest discomfort [Not Recovered/Not Resolved]
  - Dyspnoea [Not Recovered/Not Resolved]
  - Respiratory rate increased [Unknown]
  - Myopathy [Unknown]
  - Blood creatine phosphokinase increased [Recovering/Resolving]
  - Myalgia [Recovering/Resolving]
  - Asthenia [Not Recovered/Not Resolved]
  - Nausea [Unknown]
  - Blood lactate dehydrogenase increased [Unknown]
  - Mental status changes [Unknown]
  - Lactic acidosis [Unknown]
  - Vomiting [Unknown]
  - Palpitations [Not Recovered/Not Resolved]
  - Muscle swelling [Recovering/Resolving]
  - Blood creatinine increased [Unknown]
  - Heart rate increased [Unknown]
  - Blood bicarbonate decreased [Recovering/Resolving]
  - Blood lactic acid increased [Recovering/Resolving]
  - Myoglobin blood increased [Unknown]
  - Urine output decreased [Unknown]
  - Neuropathy peripheral [Unknown]
  - Muscular weakness [Not Recovered/Not Resolved]
  - Blood uric acid increased [Unknown]
  - Hypotension [Unknown]
